FAERS Safety Report 23494582 (Version 3)
Quarter: 2024Q4

REPORT INFORMATION
  Report Type: Spontaneous
  Country: US (occurrence: US)
  Receive Date: 20240207
  Receipt Date: 20241010
  Transmission Date: 20250114
  Serious: Yes (Hospitalization, Other)
  Sender: SANOFI AVENTIS
  Company Number: US-SANOFI-01697341

PATIENT
  Age: 63 Year
  Sex: Male
  Weight: 87.27 kg

DRUGS (4)
  1. DUPIXENT [Suspect]
     Active Substance: DUPILUMAB
     Indication: Asthma
     Dosage: 300 MG, QOW
     Route: 058
  2. DUPIXENT [Suspect]
     Active Substance: DUPILUMAB
     Dosage: 300 MG, QOW
  3. MONTELUKAST [Concomitant]
     Active Substance: MONTELUKAST
     Indication: Rhinitis
  4. DULERA [Concomitant]
     Active Substance: FORMOTEROL FUMARATE DIHYDRATE\MOMETASONE FUROATE

REACTIONS (5)
  - Cough [Unknown]
  - Muscle rupture [Unknown]
  - Influenza [Unknown]
  - Accidental exposure to product [Unknown]
  - Exposure via skin contact [Unknown]
